FAERS Safety Report 8152761-6 (Version None)
Quarter: 2012Q1

REPORT INFORMATION
  Report Type: 
  Country: None (occurrence: None)
  Receive Date: 20120221
  Receipt Date: 20120213
  Transmission Date: 20120608
  Serious: No
  Sender: FDA-Public Use
  Company Number: GB-B.I. PHARMACEUTICALS,INC./RIDGEFIELD-2012-UK-00089UK

PATIENT
  Age: 77 Year
  Sex: Female
  Weight: 81 kg

DRUGS (6)
  1. METFORMIN HCL [Concomitant]
     Dosage: 2 G
     Route: 048
  2. ADCAL D3 [Concomitant]
     Dosage: 4 ANZ
     Route: 048
  3. FUROSEMIDE [Concomitant]
     Dosage: 40 MG
     Route: 048
  4. SIMVASTATIN [Concomitant]
     Dosage: 40 MG
     Route: 048
  5. PERINDOPRIL [Concomitant]
     Dosage: 8 MG
     Route: 048
  6. TRAJENTA [Suspect]
     Indication: TYPE 2 DIABETES MELLITUS
     Dosage: 5 MG
     Route: 048
     Dates: start: 20111124, end: 20111215

REACTIONS (2)
  - SKIN REACTION [None]
  - URTICARIA [None]
